FAERS Safety Report 6599697-X (Version None)
Quarter: 2010Q1

REPORT INFORMATION
  Report Type: 
  Country: None (occurrence: None)
  Receive Date: 20100217
  Receipt Date: 20100205
  Transmission Date: 20100710
  Serious: Yes (Hospitalization)
  Sender: FDA-Public Use
  Company Number: 231246J10USA

PATIENT
  Age: 60 Year
  Sex: Female

DRUGS (7)
  1. REBIF [Suspect]
     Indication: MULTIPLE SCLEROSIS
     Dosage: 44 MCG, 3 IN 1 WEEKS; 44 MCG, 3 IN 1 WEEKS
     Dates: start: 20050101, end: 20090602
  2. REBIF [Suspect]
     Indication: MULTIPLE SCLEROSIS
     Dosage: 44 MCG, 3 IN 1 WEEKS; 44 MCG, 3 IN 1 WEEKS
     Dates: start: 20090815
  3. LEXAPRO [Concomitant]
  4. LYRICA [Concomitant]
  5. ZANAFLEX [Concomitant]
  6. NORTRIPTYLINE HCL [Concomitant]
  7. LUNESTA [Concomitant]

REACTIONS (2)
  - ARTHRITIS [None]
  - FOOT FRACTURE [None]
